FAERS Safety Report 6242715-9 (Version None)
Quarter: 2009Q2

REPORT INFORMATION
  Report Type: 
  Country: None (occurrence: None)
  Receive Date: 20090616
  Receipt Date: 20090616
  Transmission Date: 20091009
  Serious: Yes (Life-Threatening)
  Sender: FDA-Public Use
  Company Number: None

PATIENT
  Age: 39 Year
  Sex: Female
  Weight: 90.7194 kg

DRUGS (1)
  1. VANCOMYCIN [Suspect]
     Indication: ACCIDENTAL EXPOSURE
     Dates: start: 20090611, end: 20090611

REACTIONS (7)
  - ACCIDENTAL EXPOSURE [None]
  - FLUSHING [None]
  - OBSTRUCTIVE AIRWAYS DISORDER [None]
  - PRURITUS [None]
  - STAPHYLOCOCCAL INFECTION [None]
  - TACHYCARDIA [None]
  - URTICARIA [None]
